FAERS Safety Report 8674038 (Version 2)
Quarter: 2012Q4

REPORT INFORMATION
  Report Type: Report from Study
  Country: FR (occurrence: None)
  Receive Date: 20120703
  Receipt Date: 20120821
  Transmission Date: 20130627
  Serious: Yes (Other)
  Sender: FDA-Public Use
  Company Number: 1322615

PATIENT
  Age: 30 Year
  Sex: Female

DRUGS (2)
  1. DOCETAXEL [Suspect]
     Indication: BREAST CANCER
     Dosage: 140 MG MILLIGRAM(S)  INTRAVENOUS DRIP
     Route: 041
     Dates: start: 20120529
  2. METHYLPREDNISOLONE [Suspect]
     Indication: PREMEDICATION
     Dosage: 120 MG MILLIGRAM(S)  INTRAVENOUS (NOT OTHERWISE SPECIFIED)
     Route: 042
     Dates: start: 20120529

REACTIONS (2)
  - Malaise [None]
  - Chest pain [None]
